FAERS Safety Report 10153101 (Version 2)
Quarter: 2014Q2

REPORT INFORMATION
  Report Type: Spontaneous
  Country: GB (occurrence: GB)
  Receive Date: 20140505
  Receipt Date: 20140513
  Transmission Date: 20141212
  Serious: Yes (Hospitalization)
  Sender: FDA-Public Use
  Company Number: GB-ABBVIE-14P-167-1233071-00

PATIENT
  Age: 76 Year
  Sex: Female

DRUGS (5)
  1. VALPROATE SODIUM [Suspect]
     Indication: HEMIPLEGIC MIGRAINE
  2. METFORMIN HYDROCHLORIDE [Concomitant]
     Indication: PRODUCT USED FOR UNKNOWN INDICATION
  3. DOXAZOSIN MESILATE [Concomitant]
     Indication: PRODUCT USED FOR UNKNOWN INDICATION
  4. LISINOPRIL [Concomitant]
     Indication: PRODUCT USED FOR UNKNOWN INDICATION
  5. BISOPROLOL [Concomitant]
     Indication: PRODUCT USED FOR UNKNOWN INDICATION

REACTIONS (6)
  - Delusion [Unknown]
  - Encephalopathy [Recovering/Resolving]
  - Off label use [Unknown]
  - Confusional state [Unknown]
  - Aggression [Unknown]
  - Hallucination, auditory [Unknown]
